FAERS Safety Report 6803890-8 (Version None)
Quarter: 2010Q2

REPORT INFORMATION
  Report Type: 
  Country: None (occurrence: None)
  Receive Date: 20100628
  Receipt Date: 20100623
  Transmission Date: 20101027
  Serious: Yes (Other)
  Sender: FDA-Public Use
  Company Number: US-MYLANLABS-2010S1010791

PATIENT
  Age: 34 Year
  Sex: Female

DRUGS (5)
  1. AMNESTEEM [Suspect]
     Dosage: 40MG TWICE DAILY ON ALTERNATING DAYS
     Route: 048
     Dates: start: 20100225, end: 20100518
  2. AMNESTEEM [Suspect]
     Route: 048
     Dates: start: 20100225, end: 20100518
  3. CLARAVIS [Suspect]
     Route: 048
     Dates: start: 20091202, end: 20100225
  4. ORAL CONTRACEPTIVE NOS [Concomitant]
     Dates: end: 20100615
  5. ANTIINFECTIVES [Concomitant]
     Dates: start: 20100501

REACTIONS (3)
  - DRUG EXPOSURE DURING PREGNANCY [None]
  - METRORRHAGIA [None]
  - NEPHROLITHIASIS [None]
